FAERS Safety Report 12051143 (Version 1)
Quarter: 2016Q1

REPORT INFORMATION
  Report Type: Spontaneous
  Country: US (occurrence: None)
  Receive Date: 20160208
  Receipt Date: 20160208
  Transmission Date: 20160526
  Serious: No
  Sender: FDA-Public Use
  Company Number: None

PATIENT
  Age: 63 Year
  Sex: Male

DRUGS (2)
  1. GLIMIPIRIDE [Suspect]
     Active Substance: GLIMEPIRIDE
  2. INVOKANA [Suspect]
     Active Substance: CANAGLIFLOZIN

REACTIONS (6)
  - Injection site bruising [None]
  - Inappropriate schedule of drug administration [None]
  - Fluid retention [None]
  - Haemorrhage [None]
  - Weight increased [None]
  - Injection site oedema [None]
